FAERS Safety Report 4525412-7 (Version None)
Quarter: 2004Q4

REPORT INFORMATION
  Report Type: 
  Country: None (occurrence: None)
  Receive Date: 20041213
  Receipt Date: 20041203
  Transmission Date: 20050328
  Serious: Yes (Other)
  Sender: FDA-Public Use
  Company Number: GB-GLAXOSMITHKLINE-B0359026A

PATIENT

DRUGS (4)
  1. DARAPRIM [Suspect]
     Indication: TOXOPLASMOSIS
     Route: 065
  2. SULFADIAZINE [Concomitant]
  3. TRAMADOL HCL [Concomitant]
  4. PARACETAMOL [Concomitant]

REACTIONS (4)
  - ASPARTATE AMINOTRANSFERASE INCREASED [None]
  - BLOOD ALBUMIN DECREASED [None]
  - GAMMA-GLUTAMYLTRANSFERASE INCREASED [None]
  - RENAL IMPAIRMENT [None]
